FAERS Safety Report 5398313-2 (Version None)
Quarter: 2007Q3

REPORT INFORMATION
  Report Type: 
  Country: None (occurrence: None)
  Receive Date: 20070724
  Receipt Date: 20070710
  Transmission Date: 20080115
  Serious: Yes (Hospitalization)
  Sender: FDA-Public Use
  Company Number: 234541K07USA

PATIENT
  Age: 44 Year
  Sex: Female

DRUGS (5)
  1. REBIF [Suspect]
     Indication: MULTIPLE SCLEROSIS
     Dosage: SEE IMAGE
     Route: 058
     Dates: start: 20070509, end: 20070601
  2. REBIF [Suspect]
     Indication: MULTIPLE SCLEROSIS
     Dosage: SEE IMAGE
     Route: 058
     Dates: start: 20070601, end: 20070627
  3. CYMBALTA [Concomitant]
  4. LORTAB [Concomitant]
  5. PROVIGIL [Concomitant]

REACTIONS (6)
  - ARTHRALGIA [None]
  - EYE PAIN [None]
  - FATIGUE [None]
  - INJECTION SITE ERYTHEMA [None]
  - MIGRAINE [None]
  - PAIN [None]
